FAERS Safety Report 7514734-3 (Version None)
Quarter: 2011Q2

REPORT INFORMATION
  Report Type: 
  Country: None (occurrence: None)
  Receive Date: 20110520
  Receipt Date: 20110506
  Transmission Date: 20111010
  Serious: Yes (Other)
  Sender: FDA-Public Use
  Company Number: 11-278

PATIENT
  Age: 86 Year
  Sex: Female
  Weight: 53.5244 kg

DRUGS (6)
  1. HYGROTON [Concomitant]
  2. POTASSIUM CHLORIDE [Concomitant]
  3. ASPIRIN [Suspect]
     Dosage: DAILY
  4. ALEVE [Suspect]
     Indication: PLANTAR FASCIITIS
     Dosage: 220 MG, DAILY, ORAL
     Route: 048
     Dates: start: 20110422, end: 20110502
  5. PREMARIN [Concomitant]
  6. PRESERVISION WITH LUTEIN EYE DROPS [Concomitant]

REACTIONS (3)
  - VAGINAL HAEMORRHAGE [None]
  - PARAESTHESIA [None]
  - ABDOMINAL PAIN [None]
